FAERS Safety Report 7330770-4 (Version None)
Quarter: 2011Q1

REPORT INFORMATION
  Report Type: 
  Country: None (occurrence: None)
  Receive Date: 20110225
  Receipt Date: 20110225
  Transmission Date: 20110831
  Serious: No
  Sender: FDA-Public Use
  Company Number: None

PATIENT
  Sex: Female
  Weight: 87.9978 kg

DRUGS (1)
  1. ENBREL [Suspect]
     Indication: RHEUMATOID ARTHRITIS
     Dosage: 50MG ONCE A WEEK SUB-Q
     Route: 058
     Dates: start: 20101001, end: 20101101

REACTIONS (3)
  - FURUNCLE [None]
  - SURGERY [None]
  - SKIN ULCER [None]
